FAERS Safety Report 10654164 (Version 1)
Quarter: 2014Q4

REPORT INFORMATION
  Report Type: Spontaneous
  Country: US (occurrence: None)
  Receive Date: 20141215
  Receipt Date: 20141215
  Transmission Date: 20150529
  Serious: Yes (Other)
  Sender: FDA-Public Use
  Company Number: None

PATIENT
  Age: 22 Year
  Sex: Female
  Weight: 58.97 kg

DRUGS (3)
  1. MIDOL [Concomitant]
     Active Substance: IBUPROFEN
  2. ZOLOFT [Suspect]
     Active Substance: SERTRALINE HYDROCHLORIDE
     Indication: ANXIETY
     Dosage: TAKE 1 TABLET BY  MOUTH BID
     Route: 048
     Dates: start: 20140806, end: 20141212
  3. ZOLOFT [Suspect]
     Active Substance: SERTRALINE HYDROCHLORIDE
     Indication: MOOD ALTERED
     Dosage: TAKE 1 TABLET BY  MOUTH BID
     Route: 048
     Dates: start: 20140806, end: 20141212

REACTIONS (5)
  - Dissociative amnesia [None]
  - Loss of consciousness [None]
  - Treatment noncompliance [None]
  - Drug administration error [None]
  - Laceration [None]

NARRATIVE: CASE EVENT DATE: 20141205
